FAERS Safety Report 7024370-3 (Version None)
Quarter: 2010Q4

REPORT INFORMATION
  Report Type: 
  Country: None (occurrence: None)
  Receive Date: 20101001
  Receipt Date: 20100924
  Transmission Date: 20110411
  Serious: Yes (Other)
  Sender: FDA-Public Use
  Company Number: US-JNJFOC-20100706700

PATIENT
  Sex: Female

DRUGS (3)
  1. LEVAQUIN [Suspect]
     Indication: CYSTITIS INTERSTITIAL
     Route: 048
  2. LEVAQUIN [Suspect]
     Indication: CYSTITIS
     Route: 048
  3. CIPROFLOXACIN [Suspect]
     Indication: ANTIBIOTIC THERAPY
     Route: 065

REACTIONS (2)
  - BURSITIS [None]
  - TENDONITIS [None]
